FAERS Safety Report 14707422 (Version 2)
Quarter: 2018Q2

REPORT INFORMATION
  Report Type: Spontaneous
  Country: JP (occurrence: JP)
  Receive Date: 20180403
  Receipt Date: 20180514
  Transmission Date: 20180711
  Serious: Yes (Other)
  Sender: FDA-Public Use
  Company Number: JP-STRIDES ARCOLAB LIMITED-2018SP002531

PATIENT

DRUGS (10)
  1. LEVOFOLINIC ACID [Concomitant]
     Active Substance: LEVOLEUCOVORIN
     Indication: RECTAL CANCER STAGE IV
     Dosage: 265 MG, UNKNOWN (200 MG/M2)
     Route: 065
  2. 5-FLUOROURACIL                     /00098801/ [Interacting]
     Active Substance: FLUOROURACIL
     Dosage: 3200 MG, UNKNOWN (2400 MG/M2)
     Route: 042
  3. PIPERACILLIN/TAZOBACTAM [Concomitant]
     Active Substance: PIPERACILLIN SODIUM\TAZOBACTAM SODIUM
     Indication: ANTIBIOTIC THERAPY
     Dosage: UNK
     Route: 065
  4. 5-FLUOROURACIL                     /00098801/ [Interacting]
     Active Substance: FLUOROURACIL
     Indication: RECTAL CANCER STAGE IV
     Dosage: UNK
     Route: 065
  5. OXALIPLATIN. [Concomitant]
     Active Substance: OXALIPLATIN
     Indication: RECTAL CANCER STAGE IV
     Dosage: UNK
     Route: 065
  6. LEUCOVORIN                         /00566701/ [Concomitant]
     Active Substance: LEUCOVORIN
     Indication: RECTAL CANCER STAGE IV
     Dosage: UNK
     Route: 065
  7. 5-FLUOROURACIL                     /00098801/ [Interacting]
     Active Substance: FLUOROURACIL
     Dosage: 530 MG, UNKNOWN (400MG/M2)
     Route: 042
  8. OXALIPLATIN. [Concomitant]
     Active Substance: OXALIPLATIN
     Dosage: 110 MG, UNKNOWN (85 MG/M2)
     Route: 065
  9. METRONIDAZOLE. [Suspect]
     Active Substance: METRONIDAZOLE
     Indication: HELICOBACTER INFECTION
     Dosage: UNK
     Route: 065
  10. CEFTRIAXONE. [Concomitant]
     Active Substance: CEFTRIAXONE
     Indication: HELICOBACTER INFECTION
     Dosage: UNK
     Route: 065

REACTIONS (12)
  - Nystagmus [Unknown]
  - Blindness [Unknown]
  - Facial paresis [Unknown]
  - Extensor plantar response [Unknown]
  - Off label use [Unknown]
  - Drug interaction [Unknown]
  - Mydriasis [Unknown]
  - Altered state of consciousness [Unknown]
  - Leukoencephalopathy [Unknown]
  - Vision blurred [Unknown]
  - Monoparesis [Unknown]
  - Coma [Unknown]
